FAERS Safety Report 13200699 (Version 4)
Quarter: 2017Q2

REPORT INFORMATION
  Report Type: Report from Study
  Country: GB (occurrence: GB)
  Receive Date: 20170209
  Receipt Date: 20170613
  Transmission Date: 20170830
  Serious: Yes (Other)
  Sender: FDA-Public Use
  Company Number: PHFR2017GB001062

PATIENT
  Age: 50 Year
  Sex: Female

DRUGS (8)
  1. VALSARTAN. [Concomitant]
     Active Substance: VALSARTAN
     Indication: HYPERTENSION
     Dosage: 40 MG, QD
     Route: 048
  2. GILENYA [Suspect]
     Active Substance: FINGOLIMOD HYDROCHLORIDE
     Indication: MULTIPLE SCLEROSIS
     Dosage: 0.5 MG, QD
     Route: 048
     Dates: start: 201502, end: 201701
  3. CLONIDINE. [Concomitant]
     Active Substance: CLONIDINE
     Indication: HYPERHIDROSIS
     Dosage: 50 MG, BID
     Route: 048
     Dates: start: 201512
  4. OMEPRAZOL [Concomitant]
     Active Substance: OMEPRAZOLE
     Indication: GASTRITIS
     Dosage: 10 MG, QD
     Route: 048
     Dates: start: 201101
  5. VALSARTAN AND HYDROCHLOROTHIAZIDE [Concomitant]
     Active Substance: HYDROCHLOROTHIAZIDE\VALSARTAN
     Indication: HYPERTENSION
     Dosage: 1 DF (80/12.5 MG), QD
     Route: 048
     Dates: start: 201307
  6. CLONIDINE. [Concomitant]
     Active Substance: CLONIDINE
     Indication: MENOPAUSE
  7. PARACETAMOL [Concomitant]
     Active Substance: ACETAMINOPHEN
     Indication: TEMPOROMANDIBULAR JOINT SYNDROME
     Dosage: 500 MG, QD
     Route: 048
     Dates: start: 201603
  8. NAPROXEN. [Concomitant]
     Active Substance: NAPROXEN
     Indication: TEMPOROMANDIBULAR JOINT SYNDROME
     Dosage: 250 MG, QD
     Route: 048
     Dates: start: 201611

REACTIONS (5)
  - Splenomegaly [Unknown]
  - Hepatic steatosis [Unknown]
  - Lymphopenia [Unknown]
  - Alanine aminotransferase increased [Not Recovered/Not Resolved]
  - Hepatic neoplasm [Unknown]

NARRATIVE: CASE EVENT DATE: 201608
